FAERS Safety Report 9533426 (Version 1)
Quarter: 2013Q3

REPORT INFORMATION
  Report Type: Spontaneous
  Country: US (occurrence: US)
  Receive Date: 20130918
  Receipt Date: 20130918
  Transmission Date: 20140515
  Serious: No
  Sender: FDA-Public Use
  Company Number: US-VERTEX PHARMACEUTICALS INC-2013-009468

PATIENT
  Age: 36 Year
  Sex: Female
  Weight: 77.98 kg

DRUGS (3)
  1. INCIVEK [Suspect]
     Indication: HEPATITIS C
     Dosage: 750 MG, TID
     Route: 048
     Dates: start: 20130828
  2. RIBAVIRIN [Suspect]
     Indication: HEPATITIS C
     Dosage: 2DF QAM, 3DF QPM
     Route: 048
     Dates: start: 20130828
  3. PEGASYS [Suspect]
     Indication: HEPATITIS C
     Dosage: 180 ?G, QW
     Route: 058
     Dates: start: 20130828

REACTIONS (3)
  - Eye irritation [Recovered/Resolved]
  - Eye pruritus [Recovered/Resolved]
  - Rash [Recovered/Resolved]
